FAERS Safety Report 9237397 (Version 1)
Quarter: 2013Q2

REPORT INFORMATION
  Report Type: Spontaneous
  Country: US (occurrence: US)
  Receive Date: 20130417
  Receipt Date: 20130417
  Transmission Date: 20140414
  Serious: No
  Sender: FDA-Public Use
  Company Number: US-PFIZER INC-2013117758

PATIENT
  Age: 75 Year
  Sex: Male
  Weight: 77.1 kg

DRUGS (2)
  1. TOVIAZ [Suspect]
     Indication: DYSURIA
     Dosage: 4 MG, 1X/DAY
     Route: 048
     Dates: start: 201303
  2. TOVIAZ [Suspect]
     Indication: URINARY INCONTINENCE

REACTIONS (1)
  - Drug ineffective [Unknown]
